FAERS Safety Report 8784091 (Version 1)
Quarter: 2012Q4

REPORT INFORMATION
  Report Type: 
  Country: US (occurrence: US)
  Receive Date: 20120913
  Receipt Date: 20120913
  Transmission Date: 20130627
  Serious: Yes (Hospitalization)
  Sender: FDA-Public Use
  Company Number: PHEH2011US013230

PATIENT
  Age: 84 Year
  Sex: Female

DRUGS (6)
  1. TEKTURNA [Suspect]
     Dosage: 1 DF, daily
  2. BYSTOLIC [Concomitant]
  3. LANTUS [Concomitant]
  4. NORVASC [Concomitant]
  5. PLAVIX [Concomitant]
  6. PROCRIT [Concomitant]

REACTIONS (3)
  - Myocardial infarction [Unknown]
  - Dyspnoea [Unknown]
  - Asthenia [Unknown]
